FAERS Safety Report 9057369 (Version 5)
Quarter: 2013Q2

REPORT INFORMATION
  Report Type: Report from Study
  Country: NL (occurrence: NL)
  Receive Date: 20130204
  Receipt Date: 20130426
  Transmission Date: 20140414
  Serious: Yes (Hospitalization)
  Sender: FDA-Public Use
  Company Number: PHHO2013NL001736

PATIENT
  Age: 36 Year
  Sex: 0
  Weight: 82 kg

DRUGS (8)
  1. PROGRAF [Suspect]
     Indication: RENAL TRANSPLANT
     Dosage: 6 MG, BID
     Route: 065
     Dates: start: 20110215
  2. PROGRAF [Suspect]
     Dosage: UNK
     Dates: end: 20130128
  3. MYFORTIC [Suspect]
     Indication: RENAL TRANSPLANT
     Dosage: 360 MG, BID
     Route: 065
     Dates: start: 20110215, end: 20130128
  4. PREDNISONE [Suspect]
     Indication: RENAL TRANSPLANT
     Dosage: 10 MG, QD
     Route: 065
     Dates: start: 20110215
  5. PREDNISONE [Suspect]
     Dosage: UNK
     Dates: end: 20130128
  6. NEXIUM HP7 [Concomitant]
     Indication: PROPHYLAXIS
     Dosage: 20 MG, UNK
     Route: 065
     Dates: start: 20110223, end: 20130128
  7. SIMVASTATINE [Concomitant]
     Indication: HYPERCHOLESTEROLAEMIA
     Dosage: 10 MG, UNK
     Route: 065
     Dates: start: 20110223, end: 20130128
  8. AERIUS D 12 [Concomitant]
     Dosage: 5 MG, UNK
     Route: 065
     Dates: start: 20120402, end: 20130128

REACTIONS (4)
  - Malaise [Recovered/Resolved]
  - Blood creatinine increased [Recovered/Resolved]
  - Pyrexia [Recovered/Resolved]
  - Gastroenteritis [Recovered/Resolved]
